FAERS Safety Report 9319185 (Version 1)
Quarter: 2013Q2

REPORT INFORMATION
  Report Type: Spontaneous
  Country: US (occurrence: None)
  Receive Date: 20130529
  Receipt Date: 20130529
  Transmission Date: 20140414
  Serious: Yes (Life-Threatening, Other)
  Sender: FDA-Public Use
  Company Number: None

PATIENT
  Age: 146 None
  Sex: Female

DRUGS (1)
  1. DEPAKOTE [Suspect]

REACTIONS (3)
  - Drug level fluctuating [None]
  - Convulsion [None]
  - Disease recurrence [None]
